FAERS Safety Report 9169581 (Version 1)
Quarter: 2013Q1

REPORT INFORMATION
  Report Type: Spontaneous
  Country: PT (occurrence: PT)
  Receive Date: 20130318
  Receipt Date: 20130318
  Transmission Date: 20140127
  Serious: Yes (Disabling)
  Sender: FDA-Public Use
  Company Number: PT-MERCK-1303PRT007292

PATIENT
  Age: 54 Year
  Sex: Male

DRUGS (5)
  1. PEGINTRON [Suspect]
     Indication: HEPATITIS C
     Dosage: UNK
     Dates: start: 20121005
  2. PEGINTRON [Suspect]
     Indication: HEPATIC CIRRHOSIS
  3. REBETOL [Suspect]
     Indication: HEPATITIS C
     Dosage: UNK
     Route: 048
     Dates: start: 20121105
  4. REBETOL [Suspect]
     Indication: HEPATIC CIRRHOSIS
     Dosage: 1 TABLET DAILY
     Dates: start: 201210
  5. VICTRELIS [Suspect]
     Indication: HEPATITIS C
     Dosage: UNK
     Route: 048
     Dates: start: 20121105

REACTIONS (7)
  - Asthenia [Unknown]
  - Anaemia [Unknown]
  - Neutropenia [Unknown]
  - Depression [Unknown]
  - Rash [Unknown]
  - Dysgeusia [Unknown]
  - Pyrexia [Unknown]
